FAERS Safety Report 5724482-8 (Version None)
Quarter: 2008Q2

REPORT INFORMATION
  Report Type: 
  Country: None (occurrence: None)
  Receive Date: 20080429
  Receipt Date: 20080417
  Transmission Date: 20081010
  Serious: Yes (Hospitalization)
  Sender: FDA-Public Use
  Company Number: IT-JNJFOC-20080100989

PATIENT
  Age: 77 Year
  Sex: Male
  Weight: 84 kg

DRUGS (2)
  1. DECITABINE (DECITABINE) LYOPHILIZED POWDER [Suspect]
     Indication: MYELODYSPLASTIC SYNDROME
     Dosage: 135MG/M2 PER COURSE, EVERY SIX WEEKS : 252 MG, INTRAVENOUS
     Route: 042
     Dates: start: 20071218, end: 20071221
  2. DECITABINE (DECITABINE) LYOPHILIZED POWDER [Suspect]
     Indication: MYELODYSPLASTIC SYNDROME
     Dosage: 135MG/M2 PER COURSE, EVERY SIX WEEKS : 252 MG, INTRAVENOUS
     Route: 042
     Dates: start: 20070416

REACTIONS (5)
  - FATIGUE [None]
  - NEUTROPENIA [None]
  - PLATELET COUNT DECREASED [None]
  - PNEUMONITIS [None]
  - PYREXIA [None]
